FAERS Safety Report 11316882 (Version 1)
Quarter: 2015Q3

REPORT INFORMATION
  Report Type: Report from Study
  Country: US (occurrence: US)
  Receive Date: 20150728
  Receipt Date: 20150728
  Transmission Date: 20151125
  Serious: No
  Sender: FDA-Public Use
  Company Number: US-AMGEN-USASL2015072779

PATIENT
  Sex: Female

DRUGS (1)
  1. ENBREL [Suspect]
     Active Substance: ETANERCEPT
     Indication: PRODUCT USED FOR UNKNOWN INDICATION
     Dosage: UNK
     Route: 065

REACTIONS (6)
  - Drug effect incomplete [Unknown]
  - Injection site pain [Unknown]
  - Localised infection [Unknown]
  - Erythema [Unknown]
  - Musculoskeletal pain [Unknown]
  - Pain in extremity [Not Recovered/Not Resolved]
